FAERS Safety Report 18665314 (Version 2)
Quarter: 2021Q1

REPORT INFORMATION
  Report Type: Spontaneous
  Country: HR (occurrence: HR)
  Receive Date: 20201225
  Receipt Date: 20210105
  Transmission Date: 20210419
  Serious: Yes (Other)
  Sender: FDA-Public Use
  Company Number: HR-TAKEDA-2020TUS059926

PATIENT
  Age: 25 Year
  Sex: Male
  Weight: 50 kg

DRUGS (1)
  1. ENTYVIO [Suspect]
     Active Substance: VEDOLIZUMAB
     Indication: CROHN^S DISEASE
     Dosage: 300 MILLIGRAM
     Route: 042
     Dates: start: 20191022, end: 20200211

REACTIONS (2)
  - Crohn^s disease [Not Recovered/Not Resolved]
  - Endoscopy abnormal [Not Recovered/Not Resolved]

NARRATIVE: CASE EVENT DATE: 20191022
